FAERS Safety Report 21854168 (Version 1)
Quarter: 2023Q1

REPORT INFORMATION
  Report Type: Spontaneous
  Country: US (occurrence: None)
  Receive Date: 20230111
  Receipt Date: 20230111
  Transmission Date: 20230418
  Serious: Yes (Hospitalization)
  Sender: FDA-Public Use
  Company Number: None

PATIENT
  Sex: Female

DRUGS (15)
  1. ENBREL [Suspect]
     Active Substance: ETANERCEPT
     Indication: Rheumatoid arthritis
     Route: 058
     Dates: start: 20210420
  2. ADDERALL [Concomitant]
  3. AMBIEN [Concomitant]
     Active Substance: ZOLPIDEM TARTRATE
  4. CHLOROPHYLL [Concomitant]
  5. CYANOCOBALAM INJ [Concomitant]
  6. FISH OIL CAP [Concomitant]
  7. FOLIC ACID TAB [Concomitant]
  8. GINGER ROOT CAP [Concomitant]
  9. MELOXICAM TAB [Concomitant]
  10. METHOTREXATE [Concomitant]
     Active Substance: METHOTREXATE
  11. MILK THISTLE CAP [Concomitant]
  12. MULTIVITAMIN TAB ADULTS [Concomitant]
  13. PRISTIQ TAB [Concomitant]
  14. VITAMIN A TAB [Concomitant]
  15. VITAMIN D CAP [Concomitant]

REACTIONS (1)
  - Surgery [None]
